FAERS Safety Report 22395148 (Version 1)
Quarter: 2023Q2

REPORT INFORMATION
  Report Type: Spontaneous
  Country: FR (occurrence: FR)
  Receive Date: 20230601
  Receipt Date: 20230601
  Transmission Date: 20230721
  Serious: Yes (Other)
  Sender: FDA-Public Use
  Company Number: None

PATIENT

DRUGS (1)
  1. FIRMAGON [Suspect]
     Active Substance: DEGARELIX ACETATE
     Indication: Product used for unknown indication
     Dosage: 80 MG, ONCE/SINGLE
     Route: 023
     Dates: start: 20230503, end: 20230503

REACTIONS (2)
  - Inflammation [Recovering/Resolving]
  - Incorrect route of product administration [Recovering/Resolving]

NARRATIVE: CASE EVENT DATE: 20230503
